FAERS Safety Report 6464250-5 (Version None)
Quarter: 2009Q4

REPORT INFORMATION
  Report Type: 
  Country: None (occurrence: None)
  Receive Date: 20091201
  Receipt Date: 20091119
  Transmission Date: 20100525
  Serious: No
  Sender: FDA-Public Use
  Company Number: US-ROXANE LABORATORIES, INC.-2009-RO-01193RO

PATIENT
  Sex: Female

DRUGS (1)
  1. METHADONE HCL [Suspect]
     Indication: PAIN
     Route: 048

REACTIONS (3)
  - PAIN [None]
  - RECTAL DISCHARGE [None]
  - RECTAL HAEMORRHAGE [None]
